FAERS Safety Report 14710042 (Version 2)
Quarter: 2019Q1

REPORT INFORMATION
  Report Type: Spontaneous
  Country: US (occurrence: US)
  Receive Date: 20180403
  Receipt Date: 20190329
  Transmission Date: 20190417
  Serious: Yes (Other)
  Sender: FDA-Public Use
  Company Number: US-ASTRAZENECA-2018SE41203

PATIENT
  Age: 66 Year
  Sex: Male
  Weight: 117.9 kg

DRUGS (24)
  1. PRILOSEC OTC [Suspect]
     Active Substance: OMEPRAZOLE MAGNESIUM
     Route: 048
     Dates: start: 200801, end: 201312
  2. MELATONIN [Concomitant]
     Active Substance: MELATONIN
  3. WARFARIN [Concomitant]
     Active Substance: WARFARIN
  4. NEXIUM [Suspect]
     Active Substance: ESOMEPRAZOLE MAGNESIUM
     Route: 048
     Dates: start: 200801, end: 201312
  5. NEXIUM 24HR [Suspect]
     Active Substance: ESOMEPRAZOLE MAGNESIUM
     Route: 048
     Dates: start: 200801, end: 201312
  6. NEURONTIN [Concomitant]
     Active Substance: GABAPENTIN
  7. PRAVACHOL [Concomitant]
     Active Substance: PRAVASTATIN SODIUM
  8. CLONIDINE. [Concomitant]
     Active Substance: CLONIDINE
  9. ALLOPURINOL. [Concomitant]
     Active Substance: ALLOPURINOL
  10. PEPCID [Concomitant]
     Active Substance: FAMOTIDINE
  11. ASPIRIN. [Concomitant]
     Active Substance: ASPIRIN
  12. PROTONIX [Suspect]
     Active Substance: PANTOPRAZOLE SODIUM
     Route: 065
     Dates: start: 200801, end: 201312
  13. PRILOSEC [Suspect]
     Active Substance: OMEPRAZOLE MAGNESIUM
     Route: 048
     Dates: start: 20071015, end: 20131231
  14. FLONASE [Concomitant]
     Active Substance: FLUTICASONE PROPIONATE
  15. COZAAR [Concomitant]
     Active Substance: LOSARTAN POTASSIUM
  16. PRILOSEC [Suspect]
     Active Substance: OMEPRAZOLE MAGNESIUM
     Route: 048
     Dates: start: 200710, end: 201312
  17. PREVACID 24 HR [Suspect]
     Active Substance: LANSOPRAZOLE
     Route: 065
     Dates: start: 200801, end: 201312
  18. TYLENOL [Concomitant]
     Active Substance: ACETAMINOPHEN
  19. HEPARIN [Concomitant]
     Active Substance: HEPARIN SODIUM
  20. DEXILANT [Suspect]
     Active Substance: DEXLANSOPRAZOLE
     Route: 065
     Dates: start: 200801, end: 201312
  21. PREVACID [Suspect]
     Active Substance: LANSOPRAZOLE
     Route: 065
     Dates: start: 200801, end: 201312
  22. HYDRALAZINE [Concomitant]
     Active Substance: HYDRALAZINE HYDROCHLORIDE
  23. LOPRESSOR [Concomitant]
     Active Substance: METOPROLOL TARTRATE
  24. LASIX [Concomitant]
     Active Substance: FUROSEMIDE

REACTIONS (4)
  - Acute kidney injury [Unknown]
  - Chronic kidney disease [Unknown]
  - End stage renal disease [Unknown]
  - Renal injury [Unknown]
